FAERS Safety Report 9665151 (Version 1)
Quarter: 2013Q4

REPORT INFORMATION
  Report Type: Spontaneous
  Country: IT (occurrence: IT)
  Receive Date: 20131103
  Receipt Date: 20131103
  Transmission Date: 20140711
  Serious: Yes (Death, Hospitalization)
  Sender: FDA-Public Use
  Company Number: IT-MYLANLABS-2013S1023808

PATIENT
  Sex: Male
  Weight: 75 kg

DRUGS (2)
  1. PROPOFOL [Suspect]
     Route: 065
  2. TRAMADOL [Suspect]
     Route: 065

REACTIONS (2)
  - Acute respiratory failure [Fatal]
  - Toxicity to various agents [Fatal]
